FAERS Safety Report 16481709 (Version 1)
Quarter: 2019Q2

REPORT INFORMATION
  Report Type: Spontaneous
  Country: DK (occurrence: DK)
  Receive Date: 20190627
  Receipt Date: 20190627
  Transmission Date: 20190711
  Serious: Yes (Life-Threatening, Hospitalization)
  Sender: FDA-Public Use
  Company Number: DK-SUN PHARMACEUTICAL INDUSTRIES LTD-2019R1-211720

PATIENT
  Age: 42 Year
  Sex: Male
  Weight: 90 kg

DRUGS (2)
  1. ENALAPRIL [Suspect]
     Active Substance: ENALAPRIL
     Indication: PRODUCT USED FOR UNKNOWN INDICATION
     Dosage: UNK (1GRAM ,100 TABLETS)
     Route: 048
  2. VERAPAMIL [Suspect]
     Active Substance: VERAPAMIL HYDROCHLORIDE
     Indication: PRODUCT USED FOR UNKNOWN INDICATION
     Dosage: UNK (12 G, 100 TABLETS)
     Route: 048

REACTIONS (15)
  - Respiratory failure [Unknown]
  - Suicide attempt [Unknown]
  - Intentional overdose [Unknown]
  - Bezoar [Unknown]
  - Atrioventricular block complete [Unknown]
  - Anuria [Unknown]
  - Mental status changes [Unknown]
  - Pulmonary oedema [Not Recovered/Not Resolved]
  - Electrocardiogram abnormal [Unknown]
  - Blood lactic acid increased [Unknown]
  - Rhythm idioventricular [Unknown]
  - Heart rate decreased [Unknown]
  - Blood pressure decreased [Unknown]
  - Hypervolaemia [Unknown]
  - Hyperhidrosis [Unknown]
